FAERS Safety Report 23179352 (Version 7)
Quarter: 2024Q1

REPORT INFORMATION
  Report Type: Spontaneous
  Country: DE (occurrence: DE)
  Receive Date: 20231113
  Receipt Date: 20240123
  Transmission Date: 20240410
  Serious: Yes (Hospitalization, Other)
  Sender: FDA-Public Use
  Company Number: DE-MYLANLABS-2023M1111402

PATIENT
  Sex: Female

DRUGS (1)
  1. PANCRELIPASE [Suspect]
     Active Substance: PANCRELIPASE
     Indication: Pancreatic failure
     Route: 048

REACTIONS (9)
  - Haemorrhage [Unknown]
  - Drug intolerance [Recovering/Resolving]
  - Gastrointestinal disorder [Unknown]
  - Gastrointestinal lymphoma [Unknown]
  - Pseudomonas infection [Unknown]
  - Product availability issue [Unknown]
  - Multimorbidity [Unknown]
  - Diarrhoea [Recovered/Resolved]
  - Gastric cancer [Unknown]

NARRATIVE: CASE EVENT DATE: 20231201
